FAERS Safety Report 9878696 (Version 2)
Quarter: 2014Q1

REPORT INFORMATION
  Report Type: Spontaneous
  Country: None (occurrence: US)
  Receive Date: 20140206
  Receipt Date: 20140206
  Transmission Date: 20141002
  Serious: No
  Sender: FDA-Public Use
  Company Number: US-ALLERGAN-1309293US

PATIENT
  Age: 38 Year
  Sex: Female

DRUGS (5)
  1. BOTOX COSMETIC [Suspect]
     Indication: SKIN WRINKLING
     Dosage: 8 UNK, SINGLE
     Route: 030
     Dates: start: 20130703, end: 20130703
  2. BOTOX COSMETIC [Suspect]
     Indication: SKIN WRINKLING
     Dosage: 12 UNITS, SINGLE
     Route: 030
     Dates: start: 20130617, end: 20130617
  3. BOTOX COSMETIC [Suspect]
     Indication: SKIN WRINKLING
     Dosage: 10 UNITS, SINGLE
     Route: 030
     Dates: start: 20130617, end: 20130617
  4. BOTOX COSMETIC [Suspect]
     Indication: SKIN WRINKLING
     Dosage: 8 UNITS, SINGLE
     Route: 030
     Dates: start: 20130617, end: 20130617
  5. SYNTHROID [Concomitant]
     Indication: HYPOTHYROIDISM
     Dosage: 150 ?G, QD
     Route: 048

REACTIONS (7)
  - Drug resistance [Unknown]
  - Wrong technique in drug usage process [Unknown]
  - Injection site swelling [Recovered/Resolved]
  - Injection site bruising [Recovered/Resolved]
  - Drug ineffective [Unknown]
  - Therapeutic response decreased [Unknown]
  - Eyelid ptosis [Recovering/Resolving]
